FAERS Safety Report 18229736 (Version 1)
Quarter: 2020Q3

REPORT INFORMATION
  Report Type: Spontaneous
  Country: FR (occurrence: FR)
  Receive Date: 20200903
  Receipt Date: 20200903
  Transmission Date: 20201103
  Serious: Yes (Hospitalization)
  Sender: FDA-Public Use
  Company Number: FR-TEVA-2020-FR-1822422

PATIENT
  Age: 31 Year
  Sex: Female

DRUGS (2)
  1. MIRENA 52 MG (20 MICROGRAMMES/24 HEURES), DISPOSITIF INTRA?UTERIN [Concomitant]
     Indication: CONTRACEPTION
     Route: 015
     Dates: start: 2015
  2. DOXYCYCLINE. [Suspect]
     Active Substance: DOXYCYCLINE
     Indication: ACNE
     Dosage: 1 DOSAGE FORMS
     Route: 048
     Dates: start: 202005, end: 20200703

REACTIONS (3)
  - Ecchymosis [Not Recovered/Not Resolved]
  - Leukopenia [Not Recovered/Not Resolved]
  - Lymphopenia [Not Recovered/Not Resolved]

NARRATIVE: CASE EVENT DATE: 20200606
